FAERS Safety Report 15936383 (Version 1)
Quarter: 2019Q1

REPORT INFORMATION
  Report Type: Spontaneous
  Country: BR (occurrence: BR)
  Receive Date: 20190208
  Receipt Date: 20190208
  Transmission Date: 20190417
  Serious: Yes (Other)
  Sender: FDA-Public Use
  Company Number: BR-SA-2018SA056239

PATIENT
  Sex: Female
  Weight: 64 kg

DRUGS (4)
  1. CLEXANE [Concomitant]
     Active Substance: ENOXAPARIN SODIUM
  2. FERROUS SULFATE. [Concomitant]
     Active Substance: FERROUS SULFATE
  3. LANTUS [Suspect]
     Active Substance: INSULIN GLARGINE
     Indication: TYPE 1 DIABETES MELLITUS
     Dosage: 21 IU,UNK
     Route: 058
     Dates: start: 2000
  4. NOVORAPID [Concomitant]
     Active Substance: INSULIN ASPART
     Indication: TYPE 1 DIABETES MELLITUS
     Dosage: 15 CARBOHYDRATES 1 IU OF INSULIN
     Route: 058
     Dates: start: 2000

REACTIONS (6)
  - Hypertension [Recovered/Resolved]
  - Exposure during pregnancy [Unknown]
  - Hypoglycaemia [Unknown]
  - Caesarean section [Unknown]
  - Feeling abnormal [Unknown]
  - Placental disorder [Unknown]
